FAERS Safety Report 7383393-5 (Version None)
Quarter: 2011Q1

REPORT INFORMATION
  Report Type: 
  Country: None (occurrence: None)
  Receive Date: 20110325
  Receipt Date: 20110325
  Transmission Date: 20110831
  Serious: Yes (Hospitalization)
  Sender: FDA-Public Use
  Company Number: None

PATIENT
  Age: 58 Year
  Sex: Female
  Weight: 68.12 kg

DRUGS (3)
  1. BENICOR [Concomitant]
  2. NORCO [Concomitant]
  3. COUMADIN [Suspect]
     Indication: HIP ARTHROPLASTY
     Dosage: 5 MG QHS PO RECENT
     Route: 048

REACTIONS (3)
  - EROSIVE OESOPHAGITIS [None]
  - GASTROINTESTINAL HAEMORRHAGE [None]
  - DUODENITIS [None]
